FAERS Safety Report 21642550 (Version 1)
Quarter: 2022Q4

REPORT INFORMATION
  Report Type: Spontaneous
  Country: US (occurrence: None)
  Receive Date: 20221125
  Receipt Date: 20221125
  Transmission Date: 20230112
  Serious: Yes (Other)
  Sender: FDA-Public Use
  Company Number: US-MLMSERVICE-20221108-3907315-1

PATIENT
  Age: 11 Year
  Sex: Male

DRUGS (7)
  1. METHYLPREDNISOLONE [Suspect]
     Active Substance: METHYLPREDNISOLONE
     Indication: Urticarial vasculitis
     Dosage: INTERMITTENT INTRAVENOUS METHYLPREDNISOLONE PULSES
     Route: 042
     Dates: start: 2021
  2. PREDNISONE [Suspect]
     Active Substance: PREDNISONE
     Indication: Urticarial vasculitis
     Route: 048
     Dates: start: 2021
  3. PREDNISONE [Suspect]
     Active Substance: PREDNISONE
     Route: 048
     Dates: start: 2021
  4. PREDNISONE [Suspect]
     Active Substance: PREDNISONE
     Dosage: UNKNOWN
     Route: 065
     Dates: start: 2020
  5. PREDNISONE [Suspect]
     Active Substance: PREDNISONE
     Route: 048
     Dates: start: 2021
  6. SUCCIMER [Concomitant]
     Active Substance: SUCCIMER
     Indication: Metal poisoning
     Dosage: UNKNOWN
     Route: 065
     Dates: start: 2021
  7. ACETYLCYSTEINE [Concomitant]
     Active Substance: ACETYLCYSTEINE
     Indication: Metal poisoning
     Dosage: UNKNOWN
     Route: 065
     Dates: start: 2021

REACTIONS (4)
  - Skin striae [Unknown]
  - Weight increased [Unknown]
  - Cushingoid [Unknown]
  - Hypertension [Unknown]

NARRATIVE: CASE EVENT DATE: 20210101
